FAERS Safety Report 5445739-4 (Version None)
Quarter: 2007Q3

REPORT INFORMATION
  Report Type: 
  Country: None (occurrence: None)
  Receive Date: 20070904
  Receipt Date: 20070817
  Transmission Date: 20080115
  Serious: Yes (Other)
  Sender: FDA-Public Use
  Company Number: SU-2007-006058

PATIENT
  Age: 68 Year
  Sex: Female
  Weight: 60.782 kg

DRUGS (12)
  1. BENICAR [Suspect]
     Indication: HYPERTENSION
     Dosage: 20 MG (20 MG, 1 IN 1 D), PER ORAL
     Route: 048
     Dates: start: 20070301, end: 20070101
  2. PREMPRO [Suspect]
     Indication: OESTROGEN REPLACEMENT THERAPY
     Dosage: PATIENT TAKES 0.45MG/1.5MG TABLET, ONCE DAILY(0.45 MG,ONCE A DAY) PER ORAL
     Route: 048
  3. TOPROL-XL [Suspect]
     Indication: HYPERTENSION
     Dosage: 25 MG (25 MG, 1 IN 1D), PER ORAL
     Route: 048
     Dates: start: 20060701, end: 20070301
  4. DETROL LA [Suspect]
     Indication: INCONTINENCE
     Dosage: SEE IMAGE
     Route: 048
     Dates: start: 20070101, end: 20070801
  5. DETROL LA [Suspect]
     Indication: INCONTINENCE
     Dosage: SEE IMAGE
     Route: 048
     Dates: start: 20030101
  6. DETROL LA [Suspect]
     Indication: INCONTINENCE
     Dosage: SEE IMAGE
     Route: 048
     Dates: start: 20070101
  7. INDERAL [Suspect]
     Indication: BLOOD PRESSURE
     Dates: start: 20070729
  8. TERAZOSIN (TERAZOSIN)(TERAZOSIN) [Concomitant]
  9. CLONIDINE (CLONIDINE) (CLONIDINE) [Concomitant]
  10. LORAZEPAM [Concomitant]
  11. LEXAPRO (ESCITALOPRAM OXALATE) (ESCITALOPRAM OXALATE) [Concomitant]
  12. ZETIA [Concomitant]

REACTIONS (6)
  - ABASIA [None]
  - APHASIA [None]
  - BLOOD PRESSURE INCREASED [None]
  - FLUSHING [None]
  - HEADACHE [None]
  - HEART RATE INCREASED [None]
